FAERS Safety Report 7483221-3 (Version None)
Quarter: 2011Q2

REPORT INFORMATION
  Report Type: 
  Country: None (occurrence: None)
  Receive Date: 20110516
  Receipt Date: 20100730
  Transmission Date: 20111010
  Serious: No
  Sender: FDA-Public Use
  Company Number: US-ALLERGAN-1009950US

PATIENT
  Sex: Female

DRUGS (1)
  1. ZYMAR [Suspect]
     Indication: PREOPERATIVE CARE
     Dosage: 1 GTT, Q2HR BEFORE SURGERY
     Route: 047
     Dates: start: 20100622, end: 20100623

REACTIONS (2)
  - OCULAR HYPERAEMIA [None]
  - PHOTOPHOBIA [None]
